FAERS Safety Report 10170961 (Version 4)
Quarter: 2016Q2

REPORT INFORMATION
  Report Type: Spontaneous
  Country: US (occurrence: US)
  Receive Date: 20140514
  Receipt Date: 20160406
  Transmission Date: 20160815
  Serious: Yes (Hospitalization, Other)
  Sender: FDA-Public Use
  Company Number: US-009507513-1405USA002439

PATIENT
  Sex: Male

DRUGS (3)
  1. FOSAMAX [Suspect]
     Active Substance: ALENDRONATE SODIUM
     Indication: OSTEOPOROSIS
  2. FOSAMAX [Suspect]
     Active Substance: ALENDRONATE SODIUM
     Indication: OSTEOPENIA
     Dosage: 70 MG, QW
     Route: 048
     Dates: start: 200504, end: 201006
  3. ALENDRONATE SODIUM. [Suspect]
     Active Substance: ALENDRONATE SODIUM
     Indication: OSTEOPOROSIS
     Dosage: 70 MG, QW
     Route: 048
     Dates: start: 20100715, end: 20120316

REACTIONS (10)
  - Femur fracture [Recovered/Resolved]
  - Osteomyelitis [Unknown]
  - Tremor [Unknown]
  - Dental implantation [Unknown]
  - Bone lesion [Unknown]
  - Osteoporosis [Unknown]
  - Tooth extraction [Unknown]
  - Joint dislocation [Unknown]
  - Muscle spasms [Unknown]
  - Blount^s disease [Unknown]

NARRATIVE: CASE EVENT DATE: 2005
